FAERS Safety Report 7420295-X (Version None)
Quarter: 2011Q2

REPORT INFORMATION
  Report Type: 
  Country: None (occurrence: None)
  Receive Date: 20110418
  Receipt Date: 20110405
  Transmission Date: 20111010
  Serious: Yes (Other)
  Sender: FDA-Public Use
  Company Number: PHFR2011GB01058

PATIENT
  Sex: Female
  Weight: 94.7 kg

DRUGS (1)
  1. CLOZARIL [Suspect]
     Route: 048
     Dates: start: 20010701

REACTIONS (2)
  - HAEMOGLOBIN DECREASED [None]
  - CHOLELITHIASIS [None]
